FAERS Safety Report 23326322 (Version 2)
Quarter: 2024Q1

REPORT INFORMATION
  Report Type: Spontaneous
  Country: CN (occurrence: CN)
  Receive Date: 20231221
  Receipt Date: 20240104
  Transmission Date: 20240409
  Serious: Yes (Hospitalization, Other)
  Sender: FDA-Public Use
  Company Number: CN-BAXTER-2023BAX038636

PATIENT
  Age: 34 Year
  Sex: Female

DRUGS (6)
  1. IFOSFAMIDE [Suspect]
     Active Substance: IFOSFAMIDE
     Indication: Uterine leiomyosarcoma
     Dosage: 6 COURSES
     Route: 065
     Dates: start: 20211229, end: 20220511
  2. IFOSFAMIDE [Suspect]
     Active Substance: IFOSFAMIDE
     Dosage: ON DAYS 1 TO 3, 2 G WAS INFUSED
     Route: 042
     Dates: start: 20211229, end: 20220511
  3. ETOPOSIDE [Concomitant]
     Active Substance: ETOPOSIDE
     Indication: Uterine leiomyosarcoma
     Dosage: 6 COURSES
     Route: 065
     Dates: start: 20211229, end: 20220511
  4. ETOPOSIDE [Concomitant]
     Active Substance: ETOPOSIDE
     Dosage: ON DAYS 1 TO 3, 150 MG WAS INFUSED
     Route: 042
     Dates: start: 20211229, end: 20220511
  5. TISLELIZUMAB [Concomitant]
     Active Substance: TISLELIZUMAB
     Indication: Uterine leiomyosarcoma
     Dosage: 6 COURSES
     Route: 065
     Dates: start: 20211229, end: 20220511
  6. TISLELIZUMAB [Concomitant]
     Active Substance: TISLELIZUMAB
     Dosage: ON DAY 1, 200 MG
     Route: 042
     Dates: start: 20211229, end: 20220511

REACTIONS (3)
  - Gastrointestinal disorder [Unknown]
  - Myelosuppression [Unknown]
  - Liver injury [Unknown]
